FAERS Safety Report 20624461 (Version 3)
Quarter: 2022Q2

REPORT INFORMATION
  Report Type: Spontaneous
  Country: JP (occurrence: JP)
  Receive Date: 20220322
  Receipt Date: 20220515
  Transmission Date: 20220721
  Serious: Yes (Other)
  Sender: FDA-Public Use
  Company Number: JP-NOVARTISPH-NVSJ2021JP020638

PATIENT
  Age: 57 Year
  Sex: Male
  Weight: 80 kg

DRUGS (7)
  1. EXFORGE [Suspect]
     Active Substance: AMLODIPINE BESYLATE\VALSARTAN
     Indication: Hypertension
     Dosage: VALSARTAN 80MG+AMLODIPINE 5MG, QD
     Route: 048
     Dates: start: 2015, end: 20211019
  2. LIPITOR [Concomitant]
     Active Substance: ATORVASTATIN CALCIUM
     Indication: Hyperlipidaemia
     Dosage: 5 MG, QD
     Route: 048
     Dates: start: 2015
  3. CANAGLIFLOZIN [Concomitant]
     Active Substance: CANAGLIFLOZIN
     Indication: Diabetes mellitus
     Dosage: 100 MG, QD
     Route: 048
     Dates: start: 2017
  4. BASEN [Concomitant]
     Indication: Diabetes mellitus
     Dosage: 0.3 MG, TID
     Route: 048
     Dates: start: 2015
  5. AMARYL [Concomitant]
     Active Substance: GLIMEPIRIDE
     Indication: Diabetes mellitus
     Dosage: 1 MG, QD
     Route: 048
     Dates: start: 2015
  6. ICOSAPENT [Concomitant]
     Active Substance: ICOSAPENT
     Indication: Hyperlipidaemia
     Dosage: 900 MG, BID
     Route: 048
     Dates: start: 2020
  7. ESAXERENONE [Concomitant]
     Active Substance: ESAXERENONE
     Indication: Hypertension
     Dosage: 5 MG, QD
     Route: 048
     Dates: start: 20210622, end: 20210920

REACTIONS (8)
  - Cardiac failure [Unknown]
  - Oedema peripheral [Recovering/Resolving]
  - Ejection fraction decreased [Not Recovered/Not Resolved]
  - Protein urine [Recovering/Resolving]
  - COVID-19 [Recovered/Resolved with Sequelae]
  - Pyrexia [Unknown]
  - Dyspnoea [Unknown]
  - Ageusia [Not Recovered/Not Resolved]

NARRATIVE: CASE EVENT DATE: 20210622
